FAERS Safety Report 19196065 (Version 2)
Quarter: 2022Q4

REPORT INFORMATION
  Report Type: Report from Study
  Country: US (occurrence: US)
  Receive Date: 20210429
  Receipt Date: 20221012
  Transmission Date: 20230113
  Serious: Yes (Other)
  Sender: FDA-Public Use
  Company Number: US-JAZZ-2021-US-007529

PATIENT
  Sex: Male

DRUGS (11)
  1. XYREM [Suspect]
     Active Substance: SODIUM OXYBATE
     Indication: Insomnia
     Dosage: 4 GRAM, BID
     Route: 048
     Dates: start: 200603, end: 200605
  2. XYREM [Suspect]
     Active Substance: SODIUM OXYBATE
     Indication: Narcolepsy
     Dosage: DOSE ADJUSTMENT
     Route: 048
     Dates: start: 200605, end: 202008
  3. XYREM [Suspect]
     Active Substance: SODIUM OXYBATE
     Indication: Cataplexy
     Dosage: 4.5 GRAM, BID
     Route: 048
     Dates: start: 202011
  4. XYREM [Suspect]
     Active Substance: SODIUM OXYBATE
     Indication: Somnolence
  5. HYZAAR [Suspect]
     Active Substance: HYDROCHLOROTHIAZIDE\LOSARTAN POTASSIUM
     Indication: Product used for unknown indication
     Dosage: UNKNOWN DOSE
  6. ACETAMINOPHEN\CHLORZOXAZONE [Concomitant]
     Active Substance: ACETAMINOPHEN\CHLORZOXAZONE
     Indication: Product used for unknown indication
     Dosage: UNK
  7. MIRALAX [Concomitant]
     Active Substance: POLYETHYLENE GLYCOL 3350
     Indication: Product used for unknown indication
     Dosage: PACKET
     Dates: start: 20140128
  8. ATORVASTATIN [Concomitant]
     Active Substance: ATORVASTATIN
     Indication: Product used for unknown indication
     Dosage: UNK
     Dates: start: 20140125
  9. METOPROLOL SUCCINATE [Concomitant]
     Active Substance: METOPROLOL SUCCINATE
  10. IRON [Concomitant]
     Active Substance: IRON
  11. CALCIUM ASCORBATE [Concomitant]
     Active Substance: CALCIUM ASCORBATE

REACTIONS (5)
  - Left ventricular failure [Not Recovered/Not Resolved]
  - Hypoacusis [Unknown]
  - COVID-19 [Unknown]
  - Cellulitis [Not Recovered/Not Resolved]
  - Restless legs syndrome [Unknown]
